FAERS Safety Report 6687655-6 (Version None)
Quarter: 2010Q2

REPORT INFORMATION
  Report Type: 
  Country: None (occurrence: None)
  Receive Date: 20100415
  Receipt Date: 20100331
  Transmission Date: 20101027
  Serious: Yes (Hospitalization, Other)
  Sender: FDA-Public Use
  Company Number: DSA_42876_2010

PATIENT
  Age: 64 Year
  Sex: Male

DRUGS (7)
  1. DILTIAZEM [Suspect]
     Indication: HYPERTENSION
     Dosage: 60 MG BID ORAL
     Route: 048
     Dates: end: 20100304
  2. ATENOLOL [Suspect]
     Indication: HYPERTENSION
     Dosage: 50 MG QD ORAL
     Route: 048
     Dates: end: 20100304
  3. INDOMETHACIN [Suspect]
     Indication: ABDOMINAL PAIN
     Dosage: 50 MG TID ORAL
     Route: 048
     Dates: end: 20100304
  4. AMPHOTERICIN B [Concomitant]
  5. ASPIRIN [Concomitant]
  6. PREDNISOLONE [Concomitant]
  7. SIMVASTATIN [Concomitant]

REACTIONS (3)
  - ABDOMINAL PAIN [None]
  - CARDIAC FAILURE CONGESTIVE [None]
  - PLEURAL EFFUSION [None]
